FAERS Safety Report 19494889 (Version 1)
Quarter: 2021Q3

REPORT INFORMATION
  Report Type: Spontaneous
  Country: JP (occurrence: JP)
  Receive Date: 20210705
  Receipt Date: 20210705
  Transmission Date: 20211014
  Serious: Yes (Hospitalization)
  Sender: FDA-Public Use
  Company Number: JP-JNJFOC-20201000644

PATIENT
  Age: 50 Year
  Sex: Female

DRUGS (17)
  1. VENTAVIS [Suspect]
     Active Substance: ILOPROST
     Indication: SCLERODERMA
  2. VENTAVIS [Suspect]
     Active Substance: ILOPROST
     Indication: PULMONARY ARTERIAL HYPERTENSION
     Dosage: 2.5 G FOR THE FIRST TIME ON THE FIRST DAY, 5.0 G FROM THE SECOND TIME ON THE FIRST DAY, 6ID
     Route: 055
     Dates: start: 20200306, end: 20210208
  3. ADCIRCA [Concomitant]
     Active Substance: TADALAFIL
     Indication: PULMONARY ARTERIAL HYPERTENSION
     Route: 048
  4. FORXIGA [Concomitant]
     Active Substance: DAPAGLIFLOZIN
     Route: 048
  5. TRAMADOL HYDROCHLORIDE. [Concomitant]
     Active Substance: TRAMADOL HYDROCHLORIDE
  6. OXYGEN. [Concomitant]
     Active Substance: OXYGEN
     Indication: PULMONARY ARTERIAL HYPERTENSION
  7. ESOMEPRAZOLE. [Concomitant]
     Active Substance: ESOMEPRAZOLE MAGNESIUM
  8. OXYGEN. [Concomitant]
     Active Substance: OXYGEN
     Indication: LUNG DISORDER
     Dosage: ADMINISTERED THROUGH CANNULA
     Route: 055
     Dates: start: 20180626
  9. TENELIA [Concomitant]
     Active Substance: TENELIGLIPTIN
     Route: 048
  10. TOCOPHERYL NICOTINATE [Concomitant]
     Active Substance: TOCOPHERYL NICOTINATE, D-.ALPHA.
  11. PARACETAMOL [Concomitant]
     Active Substance: ACETAMINOPHEN
  12. ADCIRCA [Concomitant]
     Active Substance: TADALAFIL
     Indication: SCLERODERMA
  13. UPTRAVI [Concomitant]
     Active Substance: SELEXIPAG
     Route: 048
     Dates: start: 20210228
  14. OXYGEN. [Concomitant]
     Active Substance: OXYGEN
     Indication: SCLERODERMA
  15. LIMAPROST ALFADEX [Concomitant]
     Active Substance: LIMAPROST
  16. CELECOX [Concomitant]
     Active Substance: CELECOXIB
  17. OLODATEROL HYDROCHLORIDE W/TIOTROPI/08916801/ [Concomitant]
     Active Substance: OLODATEROL HYDROCHLORIDE\TIOTROPIUM BROMIDE MONOHYDRATE
     Route: 055

REACTIONS (6)
  - Right ventricular failure [Recovering/Resolving]
  - Skin erosion [Recovered/Resolved]
  - Erythema [Unknown]
  - Respiratory failure [Recovering/Resolving]
  - Erythema [Recovered/Resolved]
  - Urinary tract infection [Recovered/Resolved]

NARRATIVE: CASE EVENT DATE: 20200403
